FAERS Safety Report 9005511 (Version 1)
Quarter: 2013Q1

REPORT INFORMATION
  Report Type: Spontaneous
  Country: US (occurrence: US)
  Receive Date: 20130109
  Receipt Date: 20130109
  Transmission Date: 20140127
  Serious: Yes (Other)
  Sender: FDA-Public Use
  Company Number: US-009507513-1301USA001409

PATIENT
  Age: 14 Year
  Sex: Male

DRUGS (4)
  1. SINGULAIR [Suspect]
     Indication: PRODUCT USED FOR UNKNOWN INDICATION
  2. ZYRTEC-D [Suspect]
  3. ADVAIR [Suspect]
     Dosage: DISKUS 100/50
  4. ALBUTEROL SULFATE [Concomitant]
     Indication: ASTHMA

REACTIONS (8)
  - Convulsion [Unknown]
  - Staring [Unknown]
  - Prescribed overdose [Unknown]
  - Heart rate increased [Unknown]
  - Fatigue [Unknown]
  - Dyspnoea [Unknown]
  - Communication disorder [Unknown]
  - Cardiac disorder [Unknown]
